FAERS Safety Report 8402576-6 (Version None)
Quarter: 2012Q2

REPORT INFORMATION
  Report Type: 
  Country: None (occurrence: None)
  Receive Date: 20120323
  Receipt Date: 20110429
  Transmission Date: 20120825
  Serious: Yes (Other)
  Sender: FDA-Public Use
  Company Number: 163-21880-11050123

PATIENT
  Age: 65 Year
  Sex: Male
  Weight: 108.4097 kg

DRUGS (20)
  1. SIMVASTATIN [Concomitant]
  2. AMIODARONE HCL [Concomitant]
  3. PROVIGIL [Concomitant]
  4. METOPROLOL TARTRATE [Concomitant]
  5. REVLIMID [Suspect]
     Indication: MULTIPLE MYELOMA
     Dosage: 25 MG, DAILY 21/7, PO
     Route: 048
     Dates: start: 20081201
  6. FOLBEE (TRIOBE) [Concomitant]
  7. BUPROPION HCL [Concomitant]
  8. FISH OIL (FISH OIL) [Concomitant]
  9. FLAXSEED OIL (LINSEED OIL) [Concomitant]
  10. VITAMIN D [Concomitant]
  11. CALCIUM CARBONATE [Concomitant]
  12. ACTOS [Concomitant]
  13. TRICOR [Concomitant]
  14. CINNAMON (CINAMOMUM VERUM) [Concomitant]
  15. AMLODIPINE BESYLATE AND BENAZEPRIL HCL [Concomitant]
  16. ALPRAZOLAM [Concomitant]
  17. ACYCLOVIR [Concomitant]
  18. OMEPRAZOLE [Concomitant]
  19. ASPIRIN [Concomitant]
  20. GLUCOSAMINE CHONDROITIN (GLUCOSAMINE W/CHONDROITIN SULFATE) [Concomitant]

REACTIONS (2)
  - MUSCULOSKELETAL CHEST PAIN [None]
  - PLASMACYTOMA [None]
